FAERS Safety Report 10830685 (Version 2)
Quarter: 2015Q1

REPORT INFORMATION
  Report Type: Report from Study
  Country: BE (occurrence: BE)
  Receive Date: 20150219
  Receipt Date: 20150219
  Transmission Date: 20150721
  Serious: Yes (Hospitalization, Other)
  Sender: FDA-Public Use
  Company Number: BE-EMD SERONO-7294194

PATIENT
  Age: 45 Year
  Sex: Male

DRUGS (3)
  1. ACETYLSALICYLIC ACID [Suspect]
     Active Substance: ASPIRIN
     Indication: INFLUENZA LIKE ILLNESS
  2. REBIF [Suspect]
     Active Substance: INTERFERON BETA-1A
     Indication: MULTIPLE SCLEROSIS
     Route: 058
     Dates: start: 20071204
  3. REBIF [Suspect]
     Active Substance: INTERFERON BETA-1A
     Dosage: ON 04 DEC 2014, THE PATIENT WAS TAKING 22 MCG
     Route: 058
     Dates: start: 20120924

REACTIONS (4)
  - Influenza like illness [Recovering/Resolving]
  - Renal impairment [Unknown]
  - Pancreatitis [Unknown]
  - Hypertension [Unknown]

NARRATIVE: CASE EVENT DATE: 20071204
